FAERS Safety Report 8402612 (Version 5)
Quarter: 2016Q4

REPORT INFORMATION
  Report Type: Report from Study
  Country: CA (occurrence: CA)
  Receive Date: 20120213
  Receipt Date: 20161223
  Transmission Date: 20170207
  Serious: Yes (Other)
  Sender: FDA-Public Use
  Company Number: CA-UCBSA-047319

PATIENT
  Age: 53 Year
  Sex: Female

DRUGS (14)
  1. CERTOLIZUMAB PEGOL RA [Suspect]
     Active Substance: CERTOLIZUMAB PEGOL
     Indication: RHEUMATOID ARTHRITIS
     Dosage: 400 MG, EV 2 WEEKS(QOW) (WEEK 0, 2 AND 4)
     Route: 058
     Dates: start: 20100613, end: 20100711
  2. INDOCID [Concomitant]
     Active Substance: INDOMETHACIN
     Dosage: UNK UNK, AS NEEDED (PRN)
     Route: 048
  3. CALCIUM WITH VITAMIN D [Concomitant]
     Active Substance: CALCIUM\VITAMIN D
     Dosage: UNKNOWN DOSE
     Route: 048
  4. CIMBALTA [Concomitant]
     Route: 048
  5. MTX [Concomitant]
     Active Substance: METHOTREXATE SODIUM
     Indication: RHEUMATOID ARTHRITIS
     Dosage: 25 MG, WEEKLY (QW)
     Route: 048
     Dates: start: 2009
  6. RAN CITALO [Concomitant]
     Dosage: 40 MG, ONCE DAILY (QD)
     Route: 048
  7. LYRICA [Concomitant]
     Active Substance: PREGABALIN
     Dosage: DOSE:UNK , EVERY NIGHT AT BED TIME
     Route: 048
  8. GLUCOSAMINE WITH MSM [Concomitant]
     Dosage: UNKNOWN DOSE
     Route: 048
  9. PREDNISONE. [Concomitant]
     Active Substance: PREDNISONE
     Indication: RHEUMATOID ARTHRITIS
     Dosage: DOSE:TITRATE ONCE DAILY
     Route: 048
  10. HYDROXYZIN [Concomitant]
     Dosage: UNK UNK, AS NEEDED (PRN)
     Route: 048
  11. VITAMIN C [Concomitant]
     Active Substance: ASCORBIC ACID
     Dosage: UNKNOWN DOSE
     Route: 048
  12. CERTOLIZUMAB PEGOL RA [Suspect]
     Active Substance: CERTOLIZUMAB PEGOL
     Dosage: 200 MG, EV 2 WEEKS(QOW)
     Route: 058
     Dates: start: 20100725, end: 20120610
  13. FOLIC ACID. [Concomitant]
     Active Substance: FOLIC ACID
     Dosage: UNK UNK, ONCE DAILY (QD)
     Route: 048
  14. ATIVAN [Concomitant]
     Active Substance: LORAZEPAM
     Indication: SLEEP DISORDER
     Dosage: UNKNOWN DOSE
     Route: 048

REACTIONS (8)
  - White blood cell count decreased [Unknown]
  - Productive cough [Not Recovered/Not Resolved]
  - Kidney infection [Recovered/Resolved]
  - Urinary tract infection [Unknown]
  - Fibromyalgia [Not Recovered/Not Resolved]
  - Vulvovaginal mycotic infection [Recovered/Resolved]
  - Vaginal discharge [Recovered/Resolved]
  - Pain [Unknown]

NARRATIVE: CASE EVENT DATE: 20110907
